FAERS Safety Report 11004032 (Version 1)
Quarter: 2015Q2

REPORT INFORMATION
  Report Type: Spontaneous
  Country: GB (occurrence: GB)
  Receive Date: 20150409
  Receipt Date: 20150409
  Transmission Date: 20150821
  Serious: Yes (Disabling)
  Sender: FDA-Public Use
  Company Number: GB-TEVA-553293ACC

PATIENT
  Age: 75 Year
  Sex: Female
  Weight: 66 kg

DRUGS (12)
  1. CODEINE PHOSPHATE [Concomitant]
     Active Substance: CODEINE PHOSPHATE
     Dosage: 4 DOSAGE FORMS DAILY;
     Dates: start: 20140915
  2. BISOPROLOL [Concomitant]
     Active Substance: BISOPROLOL
     Dosage: 1 DOSAGE FORMS DAILY;
     Dates: start: 20140915
  3. AMOROLFINE [Concomitant]
     Active Substance: AMOROLFINE
     Dosage: APPLY AS DIRECTED
     Dates: start: 20150325
  4. TERBINAFINE [Suspect]
     Active Substance: TERBINAFINE
     Dates: start: 20150309
  5. GLYCERYL TRINITRATE [Concomitant]
     Active Substance: NITROGLYCERIN
     Dosage: ONE PUFF = 1DF AS NEEDED
     Dates: start: 20140915
  6. LOSEC [Concomitant]
     Active Substance: OMEPRAZOLE
     Dosage: 1 DOSAGE FORMS DAILY;
     Dates: start: 20140915
  7. PARACETAMOL [Concomitant]
     Active Substance: ACETAMINOPHEN
     Dosage: 8 DOSAGE FORMS DAILY;
     Dates: start: 20140915
  8. DERMOL [Concomitant]
     Active Substance: BENZALKONIUM CHLORIDE\CHLORHEXIDINE HYDROCHLORIDE\ISOPROPYL MYRISTATE\PARAFFIN
     Dosage: USE AS DIRECTED
     Dates: start: 20140915
  9. HYOSCINE BUTYLBROMIDE [Concomitant]
     Active Substance: BUTYLSCOPOLAMINE
     Indication: ABDOMINAL PAIN
     Dosage: TAKE ONE 4 TIMES/DAY AS NECESSARY (PRN) FOR ABDOMINAL PAIN
     Dates: start: 20140915
  10. SIMVASTATIN. [Concomitant]
     Active Substance: SIMVASTATIN
     Dosage: 1 DOSAGE FORMS DAILY; AT NIGHT
     Dates: start: 20140915
  11. LIQUIFILM TEARS [Concomitant]
     Dosage: 1-2 DROPS = 1 GTT AS NEEDED
     Dates: start: 20140915
  12. LAXIDO [Concomitant]
     Active Substance: POLYETHYLENE GLYCOL 3350\POTASSIUM CHLORIDE\SODIUM BICARBONATE\SODIUM CHLORIDE
     Dosage: 2 DOSAGE FORMS DAILY;
     Dates: start: 20140915

REACTIONS (4)
  - Nausea [Recovered/Resolved]
  - Decreased appetite [Unknown]
  - Back pain [Recovering/Resolving]
  - Malaise [Unknown]

NARRATIVE: CASE EVENT DATE: 20150325
